APPROVED DRUG PRODUCT: SOLU-CORTEF
Active Ingredient: HYDROCORTISONE SODIUM SUCCINATE
Strength: EQ 250MG BASE/VIAL
Dosage Form/Route: INJECTABLE;INJECTION
Application: N009866 | Product #002
Applicant: PHARMACIA AND UPJOHN CO
Approved: Approved Prior to Jan 1, 1982 | RLD: Yes | RS: Yes | Type: RX